FAERS Safety Report 7449011-2 (Version None)
Quarter: 2011Q2

REPORT INFORMATION
  Report Type: 
  Country: None (occurrence: None)
  Receive Date: 20110429
  Receipt Date: 20090506
  Transmission Date: 20111010
  Serious: Yes (Other)
  Sender: FDA-Public Use
  Company Number: DE-GENENTECH-317675

PATIENT
  Age: 77 Year
  Sex: Female

DRUGS (1)
  1. LUCENTIS [Suspect]
     Indication: MACULAR DEGENERATION
     Dosage: UNK
     Route: 031
     Dates: start: 20090325

REACTIONS (9)
  - PAIN [None]
  - LACRIMATION INCREASED [None]
  - SPINAL FRACTURE [None]
  - CATARACT [None]
  - VISUAL ACUITY REDUCED [None]
  - VISUAL IMPAIRMENT [None]
  - DRY EYE [None]
  - OCULAR HYPERAEMIA [None]
  - NERVE COMPRESSION [None]
